FAERS Safety Report 23563980 (Version 1)
Quarter: 2024Q1

REPORT INFORMATION
  Report Type: Spontaneous
  Country: US (occurrence: None)
  Receive Date: 20240226
  Receipt Date: 20240226
  Transmission Date: 20240410
  Serious: No
  Sender: FDA-Public Use
  Company Number: 2024A039458

PATIENT
  Sex: Female

DRUGS (1)
  1. LYNPARZA [Suspect]
     Active Substance: OLAPARIB
     Route: 048

REACTIONS (8)
  - Gastrooesophageal reflux disease [Unknown]
  - Eating disorder [Unknown]
  - Pruritus [Unknown]
  - Hyperhidrosis [Unknown]
  - Seborrhoea [Unknown]
  - Hypoaesthesia [Unknown]
  - Weight decreased [Unknown]
  - Decreased appetite [Unknown]
